FAERS Safety Report 15561759 (Version 2)
Quarter: 2018Q4

REPORT INFORMATION
  Report Type: Spontaneous
  Country: PT (occurrence: PT)
  Receive Date: 20181029
  Receipt Date: 20181127
  Transmission Date: 20190205
  Serious: Yes (Other)
  Sender: FDA-Public Use
  Company Number: PT-GLAXOSMITHKLINE-PT2018194638

PATIENT
  Age: 61 Year
  Sex: Male
  Weight: 95 kg

DRUGS (4)
  1. COSOPT [Concomitant]
     Active Substance: DORZOLAMIDE HYDROCHLORIDE\TIMOLOL MALEATE
     Indication: GLAUCOMA
     Dosage: 2 GTT, QD, 1 DROP A DAY  IN THE LEFT AND RIGHT EYE
     Route: 047
  2. ZOREF [Suspect]
     Active Substance: CEFUROXIME AXETIL
     Indication: EPIDIDYMITIS
     Dosage: 500 MG, UNK
     Route: 048
     Dates: start: 20181004, end: 20181008
  3. LUMIGAN [Concomitant]
     Active Substance: BIMATOPROST
     Indication: GLAUCOMA
     Dosage: G, QD, 1 DROP A DAY  IN THE LEFT AND RIGHT EYE
     Route: 047
  4. ENALAPRIL + HIDROCLOROTIAZIDA [Concomitant]
     Active Substance: ENALAPRIL MALEATE\HYDROCHLOROTHIAZIDE
     Indication: HYPERTENSION
     Dosage: 1 DF, QD
     Route: 048

REACTIONS (6)
  - Condition aggravated [Not Recovered/Not Resolved]
  - Headache [Recovered/Resolved]
  - Visual impairment [Not Recovered/Not Resolved]
  - Cheilitis [Recovered/Resolved]
  - Malaise [Recovered/Resolved]
  - Vision blurred [Not Recovered/Not Resolved]

NARRATIVE: CASE EVENT DATE: 20181005
